FAERS Safety Report 5713388-6 (Version None)
Quarter: 2008Q2

REPORT INFORMATION
  Report Type: 
  Country: None (occurrence: None)
  Receive Date: 20080422
  Receipt Date: 20080414
  Transmission Date: 20081010
  Serious: Yes (Life-Threatening, Other)
  Sender: FDA-Public Use
  Company Number: NO-ABBOTT-08P-122-0433659-00

PATIENT
  Sex: Female

DRUGS (3)
  1. REDUCTIL 15MG [Suspect]
     Indication: OBESITY
     Route: 048
     Dates: start: 20040801, end: 20071201
  2. REDUCTIL 15MG [Suspect]
     Route: 048
     Dates: start: 20071201, end: 20080107
  3. MEDROXYPROGESTERONE ACETATE [Concomitant]
     Indication: CONTRACEPTION
     Dosage: DOSE NOT CHANGED
     Route: 058
     Dates: start: 19990101

REACTIONS (2)
  - CONGESTIVE CARDIOMYOPATHY [None]
  - LEFT VENTRICULAR FAILURE [None]
